FAERS Safety Report 6546174-8 (Version None)
Quarter: 2010Q1

REPORT INFORMATION
  Report Type: 
  Country: None (occurrence: None)
  Receive Date: 20100119
  Receipt Date: 20100104
  Transmission Date: 20100710
  Serious: Yes (Hospitalization)
  Sender: FDA-Public Use
  Company Number: JPI-P-009389

PATIENT
  Age: 40 Year
  Sex: Female

DRUGS (5)
  1. XYREM [Suspect]
     Indication: INSOMNIA
     Dosage: 4.5 GM (2.25 GM, 2 IN 1 D) , ORAL
     Route: 048
     Dates: start: 20091201
  2. FENTANYL [Suspect]
     Indication: PAIN MANAGEMENT
  3. OXYCODONE AND ACETAMINOPHEN [Suspect]
     Indication: PAIN MANAGEMENT
  4. OXYCODONE [Suspect]
     Indication: PAIN MANAGEMENT
  5. ANTIANXIETY MEDICATIONS [Suspect]
     Indication: ANXIETY

REACTIONS (8)
  - ANXIETY [None]
  - DEPRESSION [None]
  - DRUG INTERACTION [None]
  - DRUG WITHDRAWAL SYNDROME [None]
  - MALAISE [None]
  - NAUSEA [None]
  - PAIN [None]
  - SLEEP DISORDER [None]
